FAERS Safety Report 6618036-9 (Version None)
Quarter: 2010Q1

REPORT INFORMATION
  Report Type: 
  Country: None (occurrence: None)
  Receive Date: 20100308
  Receipt Date: 20100302
  Transmission Date: 20100710
  Serious: Yes (Life-Threatening)
  Sender: FDA-Public Use
  Company Number: JP-BAYER-200912548BYL

PATIENT
  Age: 70 Year
  Sex: Male
  Weight: 55 kg

DRUGS (10)
  1. NEXAVAR [Suspect]
     Indication: RENAL CELL CARCINOMA
     Dosage: UNIT DOSE: 200 MG
     Route: 048
     Dates: start: 20090708, end: 20090716
  2. SUPACAL [Concomitant]
     Indication: CHOLELITHIASIS
     Dosage: UNIT DOSE: 40 MG
     Route: 048
     Dates: start: 20090302
  3. NORVASC [Concomitant]
     Dosage: UNIT DOSE: 5 MG
     Route: 048
     Dates: start: 20090302, end: 20090801
  4. TAKEPRON [Concomitant]
     Dosage: UNIT DOSE: 30 MG
     Route: 048
     Dates: start: 20090302
  5. GASMOTIN [Concomitant]
     Dosage: UNIT DOSE: 5 MG
     Route: 048
     Dates: start: 20090302
  6. MAGNESIUM OXIDE [Concomitant]
     Route: 048
     Dates: start: 20090302
  7. PURSENNID [Concomitant]
     Route: 048
     Dates: start: 20090302
  8. THYRADIN S [Concomitant]
     Dosage: UNIT DOSE: 50 ?G
     Route: 048
     Dates: start: 20090516, end: 20090820
  9. CALONAL [Concomitant]
     Dosage: UNIT DOSE: 200 MG
     Route: 048
     Dates: start: 20090608
  10. NAUZELIN [Concomitant]
     Dosage: TOTAL DAILY DOSE: 30 MG
     Route: 048
     Dates: start: 20090613

REACTIONS (4)
  - HYPERTENSION [None]
  - PALMAR-PLANTAR ERYTHRODYSAESTHESIA SYNDROME [None]
  - RENAL FAILURE [None]
  - SEPSIS [None]
